FAERS Safety Report 4504540-6 (Version None)
Quarter: 2004Q4

REPORT INFORMATION
  Report Type: 
  Country: None (occurrence: None)
  Receive Date: 20041118
  Receipt Date: 20041118
  Transmission Date: 20050328
  Serious: Yes (Disabling)
  Sender: FDA-Public Use
  Company Number: None

PATIENT
  Age: 53 Year
  Sex: Female
  Weight: 88.4514 kg

DRUGS (1)
  1. CRESTOR [Suspect]
     Dosage: ONE DAILY, ORAL
     Route: 048
     Dates: start: 20040407, end: 20040915

REACTIONS (5)
  - ANXIETY [None]
  - DEPRESSION [None]
  - DYSPNOEA [None]
  - MUSCULAR WEAKNESS [None]
  - PALPITATIONS [None]
